FAERS Safety Report 6170933-7 (Version None)
Quarter: 2009Q2

REPORT INFORMATION
  Report Type: 
  Country: None (occurrence: None)
  Receive Date: 20090428
  Receipt Date: 20090428
  Transmission Date: 20091009
  Serious: Yes (Other)
  Sender: FDA-Public Use
  Company Number: None

PATIENT
  Sex: Male

DRUGS (1)
  1. PLAQUENIL [Suspect]
     Indication: RHEUMATOID ARTHRITIS
     Dosage: 200MG BID ORAL
     Route: 048
     Dates: start: 20090224, end: 20090421

REACTIONS (2)
  - PRODUCT SUBSTITUTION ISSUE [None]
  - VISUAL IMPAIRMENT [None]
